FAERS Safety Report 26106128 (Version 1)
Quarter: 2025Q4

REPORT INFORMATION
  Report Type: Spontaneous
  Country: EU (occurrence: EU)
  Receive Date: 20251201
  Receipt Date: 20251201
  Transmission Date: 20260118
  Serious: Yes (Death, Other)
  Sender: AUROBINDO
  Company Number: EU-AFSSAPS-TS2025001169

PATIENT
  Age: 12 Year
  Sex: Male
  Weight: 34.8 kg

DRUGS (3)
  1. IBUPROFEN [Suspect]
     Active Substance: IBUPROFEN
     Indication: Procedural pain
     Dosage: 200 MILLIGRAM
     Dates: start: 20251031, end: 20251103
  2. KETOPROFEN [Suspect]
     Active Substance: KETOPROFEN
     Indication: Procedural pain
     Dosage: 35 MILLIGRAM, TWO TIMES A DAY
     Dates: start: 20251030, end: 20251031
  3. BACLOFEN [Concomitant]
     Active Substance: BACLOFEN
     Indication: Muscle spasticity
     Dosage: 35 MILLIGRAM, TWO TIMES A DAY
     Dates: end: 20251103

REACTIONS (1)
  - Shock [Fatal]

NARRATIVE: CASE EVENT DATE: 20251103
